FAERS Safety Report 13554839 (Version 6)
Quarter: 2017Q2

REPORT INFORMATION
  Report Type: Spontaneous
  Country: US (occurrence: US)
  Receive Date: 20170517
  Receipt Date: 20170620
  Transmission Date: 20170830
  Serious: Yes (Hospitalization)
  Sender: FDA-Public Use
  Company Number: US-ACTELION-A-US2017-153850

PATIENT
  Age: 56 Year
  Sex: Female
  Weight: 80.27 kg

DRUGS (4)
  1. ADCIRCA [Concomitant]
     Active Substance: TADALAFIL
  2. ORENITRAM [Suspect]
     Active Substance: TREPROSTINIL
     Indication: PRODUCT USED FOR UNKNOWN INDICATION
     Dosage: 1.5 MG, UNK
     Route: 065
     Dates: start: 20170509
  3. REMODULIN [Concomitant]
     Active Substance: TREPROSTINIL
  4. TRACLEER [Suspect]
     Active Substance: BOSENTAN
     Indication: PULMONARY ARTERIAL HYPERTENSION
     Dosage: 125 MG, BID
     Route: 048
     Dates: start: 201409

REACTIONS (13)
  - Device related infection [Recovered/Resolved]
  - Blood pressure increased [Recovering/Resolving]
  - Infection [Unknown]
  - Nausea [Unknown]
  - Sepsis [Unknown]
  - Pyrexia [Unknown]
  - Pain in jaw [Unknown]
  - Headache [Unknown]
  - Chills [Unknown]
  - Shoulder operation [Unknown]
  - Incorrect dose administered [Unknown]
  - Asthenia [Unknown]
  - Dyspnoea [Unknown]

NARRATIVE: CASE EVENT DATE: 201705
